FAERS Safety Report 4535452-X (Version None)
Quarter: 2004Q4

REPORT INFORMATION
  Report Type: 
  Country: None (occurrence: None)
  Receive Date: 20041222
  Receipt Date: 20040323
  Transmission Date: 20050328
  Serious: Yes (Hospitalization, Other)
  Sender: FDA-Public Use
  Company Number: US-MERCK-0403USA02154

PATIENT
  Age: 59 Year
  Sex: Male
  Weight: 115 kg

DRUGS (17)
  1. VIOXX [Suspect]
     Indication: ARTHRALGIA
     Route: 048
     Dates: start: 20030626, end: 20040101
  2. SANDOSTATIN [Concomitant]
     Indication: CARCINOMA
     Route: 065
  3. ATENOLOL [Concomitant]
     Indication: HYPERTENSION
     Route: 065
     Dates: start: 19850101
  4. PREDNISONE [Concomitant]
     Indication: ARTHRALGIA
     Route: 065
  5. DIAZIDE [Concomitant]
     Indication: FLUID RETENTION
     Route: 065
  6. FUROSEMIDE [Concomitant]
     Indication: FLUID RETENTION
     Route: 065
  7. PROCHLORPERAZINE [Concomitant]
     Route: 065
  8. PROTONIX [Concomitant]
     Route: 065
  9. ACIPHEX [Concomitant]
     Route: 065
  10. ADVAIR DISKUS 100/50 [Concomitant]
     Indication: GENERAL SYMPTOM
     Route: 065
  11. WELLBUTRIN [Concomitant]
     Route: 065
     Dates: start: 20030101
  12. COMBIVENT [Concomitant]
     Route: 065
  13. ALBUTEROL [Concomitant]
     Route: 065
  14. LITHIUM SULFATE [Concomitant]
     Route: 065
     Dates: start: 20030101, end: 20040101
  15. CELEBREX [Concomitant]
     Route: 065
  16. PAXIL [Concomitant]
     Route: 065
     Dates: start: 20030224
  17. REMINYL [Concomitant]
     Route: 048
     Dates: start: 20030201

REACTIONS (38)
  - ANGER [None]
  - ANKLE FRACTURE [None]
  - ARTHRITIS [None]
  - CARTILAGE INJURY [None]
  - CHEST PAIN [None]
  - CHILLS [None]
  - CHRONIC OBSTRUCTIVE AIRWAYS DISEASE [None]
  - COGNITIVE DISORDER [None]
  - CONFUSIONAL STATE [None]
  - COUGH [None]
  - DEEP VEIN THROMBOSIS [None]
  - DYSPHASIA [None]
  - DYSPNOEA [None]
  - EMOTIONAL DISORDER [None]
  - FALL [None]
  - GASTRIC DISORDER [None]
  - GOUT [None]
  - HEADACHE [None]
  - HYPERHIDROSIS [None]
  - INTESTINAL HAEMORRHAGE [None]
  - INTESTINAL OBSTRUCTION [None]
  - LIBIDO INCREASED [None]
  - LOCAL SWELLING [None]
  - MYOSITIS [None]
  - NASAL CONGESTION [None]
  - NECK PAIN [None]
  - OEDEMA [None]
  - OSTEOARTHRITIS [None]
  - PAIN [None]
  - PULMONARY EMBOLISM [None]
  - RECTAL HAEMORRHAGE [None]
  - RESTRICTIVE PULMONARY DISEASE [None]
  - RHEUMATOID ARTHRITIS [None]
  - RHINORRHOEA [None]
  - SLEEP APNOEA SYNDROME [None]
  - SWELLING [None]
  - SYSTEMIC LUPUS ERYTHEMATOSUS [None]
  - ULCER [None]
